FAERS Safety Report 7323006-1 (Version None)
Quarter: 2011Q1

REPORT INFORMATION
  Report Type: 
  Country: None (occurrence: None)
  Receive Date: 20110301
  Receipt Date: 20110224
  Transmission Date: 20110831
  Serious: Yes (Other)
  Sender: FDA-Public Use
  Company Number: US-BRISTOL-MYERS SQUIBB COMPANY-15422629

PATIENT
  Age: 52 Year
  Sex: Female

DRUGS (13)
  1. TEMAZEPAM [Concomitant]
     Dosage: 30MG OF HS
  2. VANCOMYCIN [Suspect]
     Indication: PROPHYLAXIS
     Dosage: 1GRAM X 3 DOSES
     Dates: start: 20101130, end: 20101201
  3. COLACE [Concomitant]
  4. PROVIGIL [Concomitant]
     Dosage: 1DF= 100 OF AM
  5. CALCIUM [Concomitant]
     Dosage: 1DF= 600 UNIT NOT SPECIFIED
  6. LASIX [Concomitant]
     Dosage: 1DF= 20 UNIT NOT SPECIFIED
  7. TRAMADOL HCL [Concomitant]
  8. PROMETHAZINE [Concomitant]
  9. MEPERIDINE HCL [Suspect]
     Indication: PROPHYLAXIS
     Dosage: OF 2 PRN
     Route: 042
     Dates: start: 20101130, end: 20101130
  10. COUMADIN [Suspect]
     Indication: PROPHYLAXIS
     Dosage: 5MG,75MG X1,10MGX 1 0G57036D:JUL2012/2.5MG,0A64654A:MAR2013/5MG,9F52112A-JUL2012/ 2.5MG.
     Route: 048
     Dates: start: 20101130
  11. ZOLMITRIPTAN [Concomitant]
  12. VITAMIN TAB [Concomitant]
     Dosage: 1DF= 500 UNIT NOT SPECIFIED,
  13. ROPINIROLE [Concomitant]

REACTIONS (1)
  - INTERNATIONAL NORMALISED RATIO ABNORMAL [None]
